FAERS Safety Report 17599729 (Version 5)
Quarter: 2020Q3

REPORT INFORMATION
  Report Type: Spontaneous
  Country: SG (occurrence: SG)
  Receive Date: 20200330
  Receipt Date: 20200904
  Transmission Date: 20201102
  Serious: Yes (Other)
  Sender: FDA-Public Use
  Company Number: SG-VIFOR (INTERNATIONAL) INC.-VIT-2020-04136

PATIENT
  Age: 80 Year
  Sex: Male

DRUGS (3)
  1. CYCLOSPORINE. [Suspect]
     Active Substance: CYCLOSPORINE
     Indication: PRODUCT USED FOR UNKNOWN INDICATION
     Route: 065
     Dates: start: 20191104
  2. DARBEPOETIN ALFA [Suspect]
     Active Substance: DARBEPOETIN ALFA
     Indication: HAEMOGLOBIN DECREASED
     Route: 065
     Dates: end: 201911
  3. MIRCERA [Suspect]
     Active Substance: METHOXY POLYETHYLENE GLYCOL-EPOETIN BETA
     Indication: END STAGE RENAL DISEASE
     Route: 058
     Dates: start: 20180410, end: 20191002

REACTIONS (5)
  - Blood erythropoietin increased [Unknown]
  - Haemoglobin decreased [Unknown]
  - Anaemia [Not Recovered/Not Resolved]
  - Cytopenia [Not Recovered/Not Resolved]
  - Product use in unapproved indication [Unknown]

NARRATIVE: CASE EVENT DATE: 20180410
